FAERS Safety Report 9642907 (Version 1)
Quarter: 2013Q4

REPORT INFORMATION
  Report Type: Report from Study
  Country: NL (occurrence: NL)
  Receive Date: 20131024
  Receipt Date: 20131024
  Transmission Date: 20140711
  Serious: Yes (Other)
  Sender: FDA-Public Use
  Company Number: PHHY2013NL119658

PATIENT
  Sex: Male

DRUGS (4)
  1. ZOMETA [Suspect]
     Indication: PROSTATE CANCER
     Dosage: 4 MG/100 ML PER 4 WEEKS
     Route: 042
  2. ZOMETA [Suspect]
     Dosage: 4 MG/100 ML PER 4 WEEKS
     Route: 042
     Dates: start: 20130730
  3. ZOMETA [Suspect]
     Dosage: 4 MG/100 ML PER 4 WEEKS
     Route: 042
     Dates: start: 20130925
  4. ZOMETA [Suspect]
     Dosage: 4 MG/100 ML PER 4 WEEKS
     Route: 042
     Dates: start: 20131022

REACTIONS (1)
  - Herpes zoster [Unknown]
